FAERS Safety Report 16671053 (Version 2)
Quarter: 2020Q2

REPORT INFORMATION
  Report Type: Spontaneous
  Country: US (occurrence: US)
  Receive Date: 20190805
  Receipt Date: 20200501
  Transmission Date: 20200713
  Serious: No
  Sender: FDA-Public Use
  Company Number: US-RADIUS HEALTH INC.-2019US002548

PATIENT
  Age: 65 Year
  Sex: Female

DRUGS (1)
  1. TYMLOS [Suspect]
     Active Substance: ABALOPARATIDE
     Indication: OSTEOPOROSIS POSTMENOPAUSAL
     Dosage: 80 MCG, QD
     Route: 058
     Dates: start: 201904

REACTIONS (13)
  - Cough [Unknown]
  - Arthralgia [Unknown]
  - Wrong technique in device usage process [Not Recovered/Not Resolved]
  - Pyrexia [Unknown]
  - Product dose omission [Not Recovered/Not Resolved]
  - Pain in extremity [Not Recovered/Not Resolved]
  - Musculoskeletal stiffness [Not Recovered/Not Resolved]
  - Product quality issue [Unknown]
  - Hypoglycaemia [Unknown]
  - Condition aggravated [Unknown]
  - Influenza [Unknown]
  - Product storage error [Recovered/Resolved]
  - Bone pain [Unknown]

NARRATIVE: CASE EVENT DATE: 201907
